FAERS Safety Report 24532486 (Version 1)
Quarter: 2024Q4

REPORT INFORMATION
  Report Type: Report from Study
  Country: KR (occurrence: KR)
  Receive Date: 20241022
  Receipt Date: 20241022
  Transmission Date: 20250115
  Serious: Yes (Other)
  Sender: ABBVIE
  Company Number: KR-ABBVIE-5969407

PATIENT
  Age: 63 Year
  Sex: Female
  Weight: 55 kg

DRUGS (7)
  1. RINVOQ [Suspect]
     Active Substance: UPADACITINIB
     Indication: Rheumatoid arthritis
     Dosage: FORM STRENGTH: 15 MG
     Route: 048
     Dates: start: 20240109
  2. FOLIC ACID [Concomitant]
     Active Substance: FOLIC ACID
     Indication: Rheumatoid arthritis
     Dosage: FORM STRENGTH: 1 MG
     Route: 048
     Dates: start: 20230314
  3. SUDAFED [Concomitant]
     Active Substance: PSEUDOEPHEDRINE HYDROCHLORIDE
     Indication: Nasopharyngitis
     Dosage: TIME INTERVAL: 0.33333333 DAYS: FORM STRENGTH: 60 MG
     Route: 048
     Dates: start: 20240109, end: 20240115
  4. LANSOPRAZOLE [Concomitant]
     Active Substance: LANSOPRAZOLE
     Indication: Gastrooesophageal reflux disease
     Dosage: FORM STRENGTH: 15 MG
     Route: 048
     Dates: start: 20230314
  5. MUTEN [Concomitant]
     Indication: Nasopharyngitis
     Dosage: TIME INTERVAL: 0.33333333 DAYS: FORM STRENGTH: 200 MG
     Route: 048
     Dates: start: 20240109, end: 20240115
  6. METHOTREXATE [Concomitant]
     Active Substance: METHOTREXATE
     Indication: Rheumatoid arthritis
     Route: 065
     Dates: start: 20231019
  7. Codaewon S [Concomitant]
     Indication: Nasopharyngitis
     Dosage: TIME INTERVAL: 0.33333333 DAYS
     Route: 048
     Dates: start: 20240109, end: 20240115

REACTIONS (1)
  - Interstitial lung disease [Not Recovered/Not Resolved]

NARRATIVE: CASE EVENT DATE: 20240327
